FAERS Safety Report 22063084 (Version 8)
Quarter: 2023Q2

REPORT INFORMATION
  Report Type: Other
  Country: DE (occurrence: None)
  Receive Date: 20230306
  Receipt Date: 20230531
  Transmission Date: 20230722
  Serious: Yes (Death, Hospitalization, Other)
  Sender: FDA-Public Use
  Company Number: DE-ROCHE-3140387

PATIENT
  Age: 66 Year
  Sex: Male
  Weight: 64 kg

DRUGS (20)
  1. EMICIZUMAB [Suspect]
     Active Substance: EMICIZUMAB
     Indication: Haemophilia A with anti factor VIII
     Route: 058
     Dates: start: 20210419, end: 20210510
  2. EMICIZUMAB [Suspect]
     Active Substance: EMICIZUMAB
     Dosage: MOST RECENT DOSE: 18/OCT/2022
     Route: 058
     Dates: start: 20210517
  3. REFACTO [Concomitant]
     Active Substance: ANTIHEMOPHILIC FACTOR, HUMAN RECOMBINANT RESIDUES 743-1636 DELETED
     Indication: Prophylaxis
     Route: 042
     Dates: start: 2000, end: 20210418
  4. REFACTO [Concomitant]
     Active Substance: ANTIHEMOPHILIC FACTOR, HUMAN RECOMBINANT RESIDUES 743-1636 DELETED
     Route: 042
     Dates: start: 20211116, end: 20211123
  5. VALSARTAN [Concomitant]
     Active Substance: VALSARTAN
     Indication: Hypertension
     Route: 048
     Dates: start: 2013
  6. TORSEMIDE [Concomitant]
     Active Substance: TORSEMIDE
     Indication: Hypertension
     Route: 048
  7. XIPAMIDE [Concomitant]
     Active Substance: XIPAMIDE
     Indication: Hypertension
     Route: 048
  8. FOSRENOL [Concomitant]
     Active Substance: LANTHANUM CARBONATE
     Indication: End stage renal disease
     Route: 048
     Dates: start: 2017
  9. CINACALCET HYDROCHLORIDE [Concomitant]
     Active Substance: CINACALCET HYDROCHLORIDE
     Indication: Hyperparathyroidism secondary
     Route: 048
     Dates: start: 2017
  10. ERYTHROPOIETIN [Concomitant]
     Active Substance: ERYTHROPOIETIN
     Indication: End stage renal disease
     Route: 042
     Dates: start: 2017
  11. ELOCTA [Concomitant]
     Active Substance: EFMOROCTOCOG ALFA
     Route: 042
     Dates: start: 20211125, end: 20211125
  12. ELOCTA [Concomitant]
     Active Substance: EFMOROCTOCOG ALFA
     Route: 042
     Dates: start: 20211126, end: 20211204
  13. ELOCTA [Concomitant]
     Active Substance: EFMOROCTOCOG ALFA
     Route: 042
     Dates: start: 20220127, end: 20220128
  14. ELOCTA [Concomitant]
     Active Substance: EFMOROCTOCOG ALFA
     Route: 042
     Dates: start: 20220129, end: 20220129
  15. ELOCTA [Concomitant]
     Active Substance: EFMOROCTOCOG ALFA
     Route: 042
     Dates: start: 20220131, end: 20220131
  16. ELOCTA [Concomitant]
     Active Substance: EFMOROCTOCOG ALFA
     Route: 042
     Dates: start: 20220718, end: 20220718
  17. ELOCTA [Concomitant]
     Active Substance: EFMOROCTOCOG ALFA
     Route: 042
     Dates: start: 20220718, end: 20220718
  18. MODERNA COVID-19 VACCINE [Concomitant]
     Active Substance: ELASOMERAN
     Indication: Prophylaxis
     Route: 030
     Dates: start: 20211109, end: 20211109
  19. ASPIRIN [Concomitant]
     Active Substance: ASPIRIN
     Route: 048
  20. CLOPIDOGREL [Concomitant]
     Active Substance: CLOPIDOGREL BISULFATE
     Route: 048
     Dates: start: 20220924

REACTIONS (5)
  - Ascites [Recovered/Resolved]
  - Death [Fatal]
  - Incarcerated umbilical hernia [Recovered/Resolved]
  - Ischaemic cardiomyopathy [Recovered/Resolved]
  - Coronary artery disease [Recovered/Resolved]

NARRATIVE: CASE EVENT DATE: 20220324
